FAERS Safety Report 8539297-5 (Version None)
Quarter: 2012Q3

REPORT INFORMATION
  Report Type: 
  Country: None (occurrence: None)
  Receive Date: 20120726
  Receipt Date: 20110926
  Transmission Date: 20120928
  Serious: No
  Sender: FDA-Public Use
  Company Number: US-ASTRAZENECA-2011SE44610

PATIENT
  Age: 36 Year
  Sex: Female
  Weight: 81.6 kg

DRUGS (2)
  1. SEROQUEL [Suspect]
     Indication: SLEEP DISORDER
     Route: 048
  2. PROZAC [Concomitant]
     Indication: DEPRESSION

REACTIONS (6)
  - POOR QUALITY SLEEP [None]
  - SLEEP DISORDER [None]
  - DRUG DOSE OMISSION [None]
  - LOSS OF EMPLOYMENT [None]
  - OFF LABEL USE [None]
  - STRESS [None]
